FAERS Safety Report 8271651-1 (Version None)
Quarter: 2012Q2

REPORT INFORMATION
  Report Type: 
  Country: None (occurrence: None)
  Receive Date: 20120410
  Receipt Date: 20120329
  Transmission Date: 20120825
  Serious: Yes (Other)
  Sender: FDA-Public Use
  Company Number: CZ-CELGENEUS-217-C5013-12012452

PATIENT
  Age: 79 Year
  Sex: Male
  Weight: 81 kg

DRUGS (12)
  1. TAD [Concomitant]
     Route: 065
  2. CARFILZOMIB [Concomitant]
     Indication: MULTIPLE MYELOMA
  3. LENALIDOMIDE [Suspect]
     Indication: MULTIPLE MYELOMA
     Route: 048
  4. MELPHALAN HYDROCHLORIDE [Suspect]
     Indication: MULTIPLE MYELOMA
     Dosage: 12 MILLIGRAM
     Route: 065
     Dates: start: 20080317, end: 20081211
  5. REVLIMID [Suspect]
     Indication: MULTIPLE MYELOMA
  6. ZARZIO [Concomitant]
     Route: 058
  7. OMEPRAZOLE [Concomitant]
     Route: 048
  8. RED BLOOD CELLS [Concomitant]
     Indication: THROMBOCYTOPENIA
     Dosage: 2X
     Route: 065
     Dates: start: 20120201, end: 20120201
  9. PREDNISONE [Suspect]
     Indication: MULTIPLE MYELOMA
     Dosage: 160 MILLIGRAM
     Route: 065
     Dates: start: 20080317, end: 20081211
  10. DEXAMETHASONE [Concomitant]
     Indication: MULTIPLE MYELOMA
  11. HERPESIN [Concomitant]
     Route: 048
  12. CIPROFLOXACIN HYDROCHLORIDE [Concomitant]
     Route: 048

REACTIONS (1)
  - ACUTE MYELOID LEUKAEMIA [None]
